FAERS Safety Report 6892517-5 (Version None)
Quarter: 2010Q3

REPORT INFORMATION
  Report Type: 
  Country: None (occurrence: None)
  Receive Date: 20100731
  Receipt Date: 20080610
  Transmission Date: 20110219
  Serious: No
  Sender: FDA-Public Use
  Company Number: US-PFIZER INC-2008028303

PATIENT
  Sex: Male
  Weight: 75 kg

DRUGS (5)
  1. NORVASC [Suspect]
     Indication: HYPERTENSION
     Route: 048
     Dates: start: 19970903
  2. NORVASC [Suspect]
     Dosage: 7.5 MG
     Route: 048
  3. LIPITOR [Suspect]
     Indication: HYPERLIPIDAEMIA
     Route: 048
     Dates: start: 19981112
  4. MULTI-VITAMINS [Concomitant]
     Dates: start: 20080101
  5. ACETYLSALICYLIC ACID SRT [Concomitant]
     Dates: start: 20000101

REACTIONS (5)
  - ACNE [None]
  - BLOOD PRESSURE INADEQUATELY CONTROLLED [None]
  - BODY HEIGHT DECREASED [None]
  - GINGIVAL HYPERPLASIA [None]
  - VITAMIN B12 DECREASED [None]
